FAERS Safety Report 9984831 (Version 1)
Quarter: 2014Q1

REPORT INFORMATION
  Report Type: Report from Study
  Country: US (occurrence: US)
  Receive Date: 20140307
  Receipt Date: 20140307
  Transmission Date: 20141002
  Serious: No
  Sender: FDA-Public Use
  Company Number: US-ABBVIE-14P-163-1186261-00

PATIENT
  Age: 60 Year
  Sex: Female

DRUGS (13)
  1. HUMIRA [Suspect]
     Indication: RHEUMATOID ARTHRITIS
     Dates: start: 20131215
  2. METHOTREXATE [Concomitant]
     Indication: RHEUMATOID ARTHRITIS
     Dosage: SEVEN PILLS
  3. ATENOLOL [Concomitant]
     Indication: HYPERTENSION
  4. MELOXICAM [Concomitant]
     Indication: RHEUMATOID ARTHRITIS
  5. EYE GTTS [Concomitant]
     Indication: GLAUCOMA
  6. FOLIC ACID [Concomitant]
     Indication: PRODUCT USED FOR UNKNOWN INDICATION
  7. TRILEPTAL [Concomitant]
     Indication: DEPRESSION
  8. CLONAZEPAM [Concomitant]
     Indication: ANXIETY
  9. CLONAZEPAM [Concomitant]
     Indication: PANIC REACTION
  10. CRESTOR [Concomitant]
     Indication: BLOOD CHOLESTEROL INCREASED
  11. SOMA [Concomitant]
     Indication: FIBROMYALGIA
  12. HYDROCODONE [Concomitant]
     Indication: PAIN
  13. HUMALOG [Concomitant]
     Indication: DIABETES MELLITUS
     Dosage: PER SLIDING SCALE
     Route: 058

REACTIONS (2)
  - Device issue [Unknown]
  - Hordeolum [Recovering/Resolving]
